FAERS Safety Report 5121568-6 (Version None)
Quarter: 2006Q4

REPORT INFORMATION
  Report Type: 
  Country: None (occurrence: None)
  Receive Date: 20061006
  Receipt Date: 20060923
  Transmission Date: 20070319
  Serious: Yes (Other)
  Sender: FDA-Public Use
  Company Number: PHEH2006US12117

PATIENT
  Sex: Male

DRUGS (1)
  1. EXJADE [Suspect]
     Route: 048

REACTIONS (5)
  - DRUG INTOLERANCE [None]
  - DYSKINESIA [None]
  - MUSCLE RIGIDITY [None]
  - TIC [None]
  - VOMITING [None]
